FAERS Safety Report 6328045-5 (Version None)
Quarter: 2009Q3

REPORT INFORMATION
  Report Type: 
  Country: None (occurrence: None)
  Receive Date: 20090825
  Receipt Date: 20080921
  Transmission Date: 20100115
  Serious: No
  Sender: FDA-Public Use
  Company Number: US-ABBOTT-08P-163-0478247-00

PATIENT
  Sex: Male
  Weight: 68.1 kg

DRUGS (12)
  1. SYNTHROID [Suspect]
     Indication: DRUG USE FOR UNKNOWN INDICATION
     Route: 048
     Dates: start: 20080914, end: 20080920
  2. NARINE [Concomitant]
     Indication: HYPERSENSITIVITY
     Route: 048
  3. ROSUVASTATIN CALCIUM [Concomitant]
     Indication: BLOOD CHOLESTEROL
     Route: 048
  4. FISH OIL [Concomitant]
     Indication: BLOOD CHOLESTEROL
     Route: 048
  5. PANTOPRAZOLE SODIUM [Concomitant]
     Indication: GASTROOESOPHAGEAL REFLUX DISEASE
     Route: 048
  6. RIZATRIPTAN BENZOATE [Concomitant]
     Indication: MIGRAINE
     Route: 048
  7. NAPROXEN SODIUM [Concomitant]
     Indication: DRUG USE FOR UNKNOWN INDICATION
     Route: 048
  8. VIGRAN [Concomitant]
     Indication: DRUG USE FOR UNKNOWN INDICATION
     Route: 048
  9. MONTELUKAST [Concomitant]
     Indication: ASTHMA
     Route: 048
  10. SALBUTAMOL [Concomitant]
     Indication: ASTHMA
     Route: 055
  11. VALACYCLOVIR [Concomitant]
     Indication: DRUG USE FOR UNKNOWN INDICATION
     Route: 048
  12. DOZOL [Concomitant]
     Indication: SLEEP DISORDER
     Route: 048

REACTIONS (5)
  - ABNORMAL BEHAVIOUR [None]
  - ACCIDENTAL EXPOSURE [None]
  - ANXIETY [None]
  - FEELING ABNORMAL [None]
  - HEART RATE INCREASED [None]
